FAERS Safety Report 13473397 (Version 1)
Quarter: 2017Q2

REPORT INFORMATION
  Report Type: Spontaneous
  Country: US (occurrence: US)
  Receive Date: 20170424
  Receipt Date: 20170424
  Transmission Date: 20170830
  Serious: No
  Sender: FDA-Public Use
  Company Number: US-ASTELLAS-2016US044290

PATIENT
  Age: 91 Year
  Sex: Male

DRUGS (2)
  1. LEXISCAN [Suspect]
     Active Substance: REGADENOSON
     Indication: SCAN MYOCARDIAL PERFUSION
     Dosage: 0.4 MG, TOTAL DOSE OVER 10 SECONDS
     Route: 042
     Dates: start: 20160817, end: 20160817
  2. LEXISCAN [Suspect]
     Active Substance: REGADENOSON
     Indication: CHEST PAIN

REACTIONS (2)
  - Dizziness [Unknown]
  - Injection site extravasation [Unknown]

NARRATIVE: CASE EVENT DATE: 20160817
